FAERS Safety Report 9826176 (Version 3)
Quarter: 2014Q4

REPORT INFORMATION
  Report Type: Spontaneous
  Country: US (occurrence: None)
  Receive Date: 20131028
  Receipt Date: 20141015
  Transmission Date: 20150529
  Serious: Yes (Hospitalization, Other)
  Sender: FDA-Public Use
  Company Number: 2013US001821

PATIENT
  Age: 28 Year
  Sex: Male

DRUGS (2)
  1. ICLUSIG [Suspect]
     Active Substance: PONATINIB
     Indication: ACUTE LYMPHOCYTIC LEUKAEMIA
     Dosage: 45 MG, QD, ORAL
     Route: 048
     Dates: start: 20130614, end: 201306
  2. ICLUSIG [Suspect]
     Active Substance: PONATINIB
     Indication: PHILADELPHIA CHROMOSOME POSITIVE
     Dosage: 45 MG, QD, ORAL
     Route: 048
     Dates: start: 20130614, end: 201306

REACTIONS (4)
  - White blood cell count decreased [None]
  - Neoplasm progression [None]
  - Thrombocytopenia [None]
  - No adverse event [None]

NARRATIVE: CASE EVENT DATE: 201306
